FAERS Safety Report 10983667 (Version 2)
Quarter: 2015Q2

REPORT INFORMATION
  Report Type: Report from Study
  Country: DE (occurrence: DE)
  Receive Date: 20150403
  Receipt Date: 20150417
  Transmission Date: 20150821
  Serious: Yes (Hospitalization, Other)
  Sender: FDA-Public Use
  Company Number: DE-ABBVIE-15K-062-1367044-00

PATIENT
  Age: 39 Year
  Sex: Male
  Weight: 62 kg

DRUGS (4)
  1. NOVAMINSULFON [Concomitant]
     Active Substance: METAMIZOLE
     Indication: PRODUCT USED FOR UNKNOWN INDICATION
     Dosage: 1-1-1-0
  2. HUMIRA [Suspect]
     Active Substance: ADALIMUMAB
     Indication: PSORIASIS
     Route: 058
     Dates: start: 201407, end: 201411
  3. BUDENOFALK [Concomitant]
     Active Substance: BUDESONIDE
     Indication: PRODUCT USED FOR UNKNOWN INDICATION
     Dosage: 1-0-0-0
     Dates: end: 20150218
  4. SALOFALK [Concomitant]
     Active Substance: MESALAMINE
     Indication: PRODUCT USED FOR UNKNOWN INDICATION
     Dosage: 1.5-0-0-0

REACTIONS (29)
  - Peritonitis [Recovered/Resolved]
  - Platelet count increased [Unknown]
  - Ileal stenosis [Unknown]
  - Urethral disorder [Unknown]
  - Haemoglobin decreased [Unknown]
  - Streptococcal infection [Unknown]
  - Splenomegaly [Unknown]
  - Intestinal resection [Not Recovered/Not Resolved]
  - Stoma site abscess [Recovered/Resolved]
  - Purulence [Recovered/Resolved]
  - Abdominal pain [Unknown]
  - Crohn^s disease [Not Recovered/Not Resolved]
  - Blood sodium decreased [Unknown]
  - Colitis [Recovered/Resolved]
  - Gastritis bacterial [Recovered/Resolved]
  - Abdominal lymphadenopathy [Unknown]
  - Cystitis noninfective [Unknown]
  - Abscess intestinal [Not Recovered/Not Resolved]
  - Acute stress disorder [Unknown]
  - White blood cell count increased [Unknown]
  - General physical health deterioration [Recovered/Resolved]
  - Pyrexia [Recovered/Resolved]
  - Blood creatinine decreased [Unknown]
  - Hepatic cyst [Unknown]
  - Procedural pain [Recovered/Resolved]
  - Gastrointestinal disorder [Unknown]
  - Haematuria [Unknown]
  - Prothrombin time prolonged [Unknown]
  - White blood cell count decreased [Unknown]

NARRATIVE: CASE EVENT DATE: 201411
